FAERS Safety Report 9492422 (Version 3)
Quarter: 2016Q1

REPORT INFORMATION
  Report Type: Spontaneous
  Country: DE (occurrence: DE)
  Receive Date: 20130830
  Receipt Date: 20160203
  Transmission Date: 20160526
  Serious: Yes (Death, Other)
  Sender: FDA-Public Use
  Company Number: DE-BRISTOL-MYERS SQUIBB COMPANY-19223122

PATIENT
  Age: 61 Year
  Sex: Female
  Weight: 56.3 kg

DRUGS (1)
  1. IPILIMUMAB [Suspect]
     Active Substance: IPILIMUMAB
     Indication: MALIGNANT MELANOMA
     Dosage: 3.0 MG/KG BODY WEIGHT  ON 04-APR-2013 AND ON 26-APR-2013 RECEIVED IPILIMUMAB DOSE OF 169 MG.
     Route: 042
     Dates: start: 20130312

REACTIONS (3)
  - Malignant neoplasm progression [Fatal]
  - Pleural effusion [Recovered/Resolved]
  - Off label use [Unknown]

NARRATIVE: CASE EVENT DATE: 201303
